FAERS Safety Report 24391092 (Version 1)
Quarter: 2024Q4

REPORT INFORMATION
  Report Type: Spontaneous
  Country: FR (occurrence: FR)
  Receive Date: 20241003
  Receipt Date: 20241003
  Transmission Date: 20250115
  Serious: Yes (Other)
  Sender: CELLTRION
  Company Number: FR-CELLTRION INC.-2024FR023590

PATIENT

DRUGS (3)
  1. INFLIXIMAB [Suspect]
     Active Substance: INFLIXIMAB
     Indication: Spondyloarthropathy
     Dosage: 250 MG, EVERY 1 CYCLE
     Route: 042
     Dates: start: 20220729, end: 20220729
  2. INFLIXIMAB [Suspect]
     Active Substance: INFLIXIMAB
     Dosage: 250 MG, EVERY 1 CYCLE
     Route: 042
     Dates: start: 20220610, end: 20220610
  3. INFLIXIMAB [Suspect]
     Active Substance: INFLIXIMAB
     Dosage: 250 MG, EVERY 1 CYCLE
     Route: 042
     Dates: start: 201710, end: 201804

REACTIONS (7)
  - Allergy test positive [Recovered/Resolved]
  - Tremor [Recovered/Resolved]
  - Drug specific antibody [Recovered/Resolved]
  - Feeling cold [Recovered/Resolved]
  - Dyspnoea [Recovered/Resolved]
  - Nausea [Recovered/Resolved]
  - Underdose [Unknown]

NARRATIVE: CASE EVENT DATE: 20220729
